FAERS Safety Report 8836605 (Version 1)
Quarter: 2012Q4

REPORT INFORMATION
  Report Type: Spontaneous
  Country: US (occurrence: None)
  Receive Date: 20121012
  Receipt Date: 20121012
  Transmission Date: 20130627
  Serious: Yes (Death)
  Sender: FDA-Public Use
  Company Number: None

PATIENT
  Sex: Female
  Weight: 49.1 kg

DRUGS (1)
  1. METHYLPREDNISOLONE ACETATE [Suspect]

REACTIONS (11)
  - Pyrexia [None]
  - Headache [None]
  - Musculoskeletal stiffness [None]
  - Photophobia [None]
  - Vomiting [None]
  - Meningitis [None]
  - Cerebral infarction [None]
  - CSF white blood cell count increased [None]
  - CSF protein increased [None]
  - CSF glucose decreased [None]
  - Muscle rigidity [None]
